FAERS Safety Report 5040363-X (Version None)
Quarter: 2006Q2

REPORT INFORMATION
  Report Type: 
  Country: None (occurrence: None)
  Receive Date: 20060630
  Receipt Date: 20060619
  Transmission Date: 20061013
  Serious: Yes (Other)
  Sender: FDA-Public Use
  Company Number: US-GLAXOSMITHKLINE-A0610622A

PATIENT
  Age: 46 Year
  Sex: Female

DRUGS (1)
  1. GOODY'S POWDER [Suspect]
     Indication: PAIN

REACTIONS (1)
  - DEPENDENCE [None]
